FAERS Safety Report 4453957-7 (Version None)
Quarter: 2004Q3

REPORT INFORMATION
  Report Type: 
  Country: None (occurrence: None)
  Receive Date: 20040920
  Receipt Date: 20040915
  Transmission Date: 20050211
  Serious: Yes (Hospitalization)
  Sender: FDA-Public Use
  Company Number: AU 040808017

PATIENT
  Age: 63 Year
  Sex: Male

DRUGS (2)
  1. NAVELBINE [Suspect]
     Indication: LYMPHOMA
     Dosage: 42MG CYCLIC
     Route: 065
     Dates: start: 20040826
  2. GEMCITABINE [Suspect]
     Indication: LYMPHOMA
     Dosage: 1700MG CYCLIC
     Route: 042
     Dates: start: 20040826

REACTIONS (6)
  - EPISTAXIS [None]
  - FEBRILE NEUTROPENIA [None]
  - HAEMOGLOBIN INCREASED [None]
  - HYPOTENSION [None]
  - THROMBOCYTOPENIA [None]
  - WHITE BLOOD CELL COUNT INCREASED [None]
